FAERS Safety Report 8514309-3 (Version None)
Quarter: 2012Q3

REPORT INFORMATION
  Report Type: 
  Country: None (occurrence: None)
  Receive Date: 20120717
  Receipt Date: 20120709
  Transmission Date: 20120928
  Serious: Yes (Other)
  Sender: FDA-Public Use
  Company Number: FI-JNJFOC-20120705550

PATIENT
  Age: 63 Year
  Sex: Male

DRUGS (1)
  1. NICORETTE (MINT) [Suspect]
     Indication: SMOKING CESSATION THERAPY
     Dosage: SINCE ABOUT A YEAR
     Route: 048

REACTIONS (3)
  - NICOTINE DEPENDENCE [None]
  - PRODUCT PACKAGING ISSUE [None]
  - INCORRECT DRUG ADMINISTRATION DURATION [None]
